FAERS Safety Report 26206488 (Version 1)
Quarter: 2025Q4

REPORT INFORMATION
  Report Type: Spontaneous
  Country: EU (occurrence: EU)
  Receive Date: 20251229
  Receipt Date: 20251229
  Transmission Date: 20260118
  Serious: Yes (Other)
  Sender: AMGEN
  Company Number: EU-BEH-2025230261

PATIENT
  Age: 80 Year
  Sex: Female

DRUGS (4)
  1. TAVNEOS [Suspect]
     Active Substance: AVACOPAN
     Indication: Product used for unknown indication
     Dosage: UNK
     Route: 065
     Dates: start: 20250807
  2. RITUXIMAB [Concomitant]
     Active Substance: RITUXIMAB
     Indication: Product used for unknown indication
     Dosage: UNK
     Route: 065
     Dates: start: 20250814
  3. BACTRIM [Concomitant]
     Active Substance: SULFAMETHOXAZOLE\TRIMETHOPRIM
     Dosage: UNK
     Route: 065
     Dates: end: 202510
  4. ATOVAQUONE [Concomitant]
     Active Substance: ATOVAQUONE
     Dosage: UNK
     Route: 065
     Dates: start: 202510

REACTIONS (1)
  - Agranulocytosis [Unknown]

NARRATIVE: CASE EVENT DATE: 20251024
